FAERS Safety Report 23811934 (Version 1)
Quarter: 2024Q2

REPORT INFORMATION
  Report Type: Spontaneous
  Country: US (occurrence: US)
  Receive Date: 20240503
  Receipt Date: 20240503
  Transmission Date: 20240717
  Serious: No
  Sender: FDA-Public Use
  Company Number: US-UCBSA-2023028539

PATIENT
  Sex: Male
  Weight: 73.878 kg

DRUGS (2)
  1. CIMZIA [Suspect]
     Active Substance: CERTOLIZUMAB PEGOL
     Indication: Ankylosing spondylitis
     Dosage: 400 MILLIGRAM, EV 2 WEEKS(QOW). AT WEEK 0, 2 AND 4
     Route: 058
     Dates: start: 20230428
  2. OMEPRAZOLE [Concomitant]
     Active Substance: OMEPRAZOLE
     Indication: Product used for unknown indication
     Dosage: 40 MILLIGRAM

REACTIONS (4)
  - Product leakage [Unknown]
  - Glossodynia [Unknown]
  - Urticaria [Recovered/Resolved]
  - Anxiety [Not Recovered/Not Resolved]
